FAERS Safety Report 6663782-4 (Version None)
Quarter: 2010Q1

REPORT INFORMATION
  Report Type: 
  Country: None (occurrence: None)
  Receive Date: 20100331
  Receipt Date: 20100331
  Transmission Date: 20100710
  Serious: Yes (Hospitalization, Other)
  Sender: FDA-Public Use
  Company Number: None

PATIENT
  Age: 72 Year
  Sex: Male
  Weight: 70.7 kg

DRUGS (20)
  1. SORAFENIB 200MG BAYER/ONYX HEALTHCARE [Suspect]
     Indication: HEPATIC NEOPLASM MALIGNANT
     Dosage: 400MG TWICE DAILY PO
     Route: 048
     Dates: start: 20090323, end: 20100222
  2. MEGESTEROL [Concomitant]
  3. ALBUTEROL [Concomitant]
  4. COLBALT GLUCONATE [Concomitant]
  5. DUTASTERIDE [Concomitant]
  6. POTASSIUM CHLORIDE [Concomitant]
  7. LEVOTHYROXINE SODIUM [Concomitant]
  8. ACETAMINOPHEN AND HYDROCODONE BITARTRATE [Concomitant]
  9. TAMSULOSIN HCL [Concomitant]
  10. INSULIN GLARGINE [Concomitant]
  11. FONDAPARINUX SODIUM [Concomitant]
  12. PROPRANOLOL [Concomitant]
  13. ESOMEPRAZOLE [Concomitant]
  14. AMLODIPINE [Concomitant]
  15. OCTREOTIDE ACETATE [Concomitant]
  16. FUROSEMIDE [Concomitant]
  17. METFORMIN [Concomitant]
  18. GLIPIZIDE [Concomitant]
  19. LORATADINE [Concomitant]
  20. FINASTERIDE [Concomitant]

REACTIONS (3)
  - ABDOMINAL PAIN [None]
  - MENTAL STATUS CHANGES [None]
  - PALMAR-PLANTAR ERYTHRODYSAESTHESIA SYNDROME [None]
